FAERS Safety Report 8419267-8 (Version None)
Quarter: 2012Q2

REPORT INFORMATION
  Report Type: 
  Country: None (occurrence: None)
  Receive Date: 20120607
  Receipt Date: 20120601
  Transmission Date: 20120825
  Serious: Yes (Hospitalization, Other)
  Sender: FDA-Public Use
  Company Number: SE-ROCHE-1061410

PATIENT
  Sex: Female
  Weight: 69 kg

DRUGS (4)
  1. MABTHERA [Suspect]
     Dosage: MAINTAINANCE THERAPY
     Route: 058
     Dates: start: 20120412
  2. BENDAMUSTINE [Suspect]
     Indication: B-CELL LYMPHOMA
     Dates: start: 20120327, end: 20120327
  3. BETAMETAZON [Concomitant]
     Indication: INFLAMMATION
     Dates: start: 20120327, end: 20120327
  4. MABTHERA [Suspect]
     Indication: B-CELL LYMPHOMA
     Dosage: LAST DOSE PRIOR TO SAE: 12/APR/2012, CYCLE 1, INDUCTION THERAPY
     Route: 042
     Dates: start: 20120315

REACTIONS (2)
  - SKIN REACTION [None]
  - FEBRILE NEUTROPENIA [None]
